FAERS Safety Report 23081769 (Version 1)
Quarter: 2023Q4

REPORT INFORMATION
  Report Type: Report from Study
  Country: US (occurrence: US)
  Receive Date: 20231019
  Receipt Date: 20231019
  Transmission Date: 20240109
  Serious: Yes (Hospitalization)
  Sender: FDA-Public Use
  Company Number: US-TAKEDA-2023TUS003719

PATIENT
  Sex: Female
  Weight: 102.04 kg

DRUGS (28)
  1. HUMAN IMMUNOGLOBULIN G [Suspect]
     Active Substance: HUMAN IMMUNOGLOBULIN G
     Indication: Immunodeficiency common variable
     Dosage: 16 GRAM, 1/WEEK
     Route: 058
     Dates: start: 20220930
  2. FLAGYL [Suspect]
     Active Substance: METRONIDAZOLE\METRONIDAZOLE HYDROCHLORIDE
     Indication: Colitis
     Dosage: UNK
     Route: 065
  3. CIPRO [Suspect]
     Active Substance: CIPROFLOXACIN HYDROCHLORIDE
     Indication: Colitis
     Dosage: UNK
     Route: 065
  4. DIPHENHYDRAMINE [Concomitant]
     Active Substance: DIPHENHYDRAMINE
  5. CLOPIDOGREL [Concomitant]
     Active Substance: CLOPIDOGREL BISULFATE
  6. PREVACID [Concomitant]
     Active Substance: LANSOPRAZOLE
  7. TOPROL XL [Concomitant]
     Active Substance: METOPROLOL SUCCINATE
  8. VITAMIN D [Concomitant]
     Active Substance: VITAMIN D NOS
  9. EPINEPHRINE [Concomitant]
     Active Substance: EPINEPHRINE
  10. TRULICITY [Concomitant]
     Active Substance: DULAGLUTIDE
  11. AZITHROMYCIN [Concomitant]
     Active Substance: AZITHROMYCIN
  12. BUPROPION HYDROCHLORIDE [Concomitant]
     Active Substance: BUPROPION HYDROCHLORIDE
  13. TRIAMCINOLONE ACETONIDE [Concomitant]
     Active Substance: TRIAMCINOLONE ACETONIDE
  14. NITROGLYCERIN [Concomitant]
     Active Substance: NITROGLYCERIN
  15. AMLODIPINE BESYLATE [Concomitant]
     Active Substance: AMLODIPINE BESYLATE
  16. BASAGLAR [Concomitant]
     Active Substance: INSULIN GLARGINE
     Dosage: UNK
     Route: 065
  17. ALBUTEROL SULFATE [Concomitant]
     Active Substance: ALBUTEROL SULFATE
  18. EPIPEN [Concomitant]
     Active Substance: EPINEPHRINE
  19. MODAFINIL [Concomitant]
     Active Substance: MODAFINIL
  20. REPAGLINIDE [Concomitant]
     Active Substance: REPAGLINIDE
  21. CRESTOR [Concomitant]
     Active Substance: ROSUVASTATIN CALCIUM
  22. FEXOFENADINE HYDROCHLORIDE [Concomitant]
     Active Substance: FEXOFENADINE HYDROCHLORIDE
  23. LISINOPRIL [Concomitant]
     Active Substance: LISINOPRIL
  24. MUCINEX [Concomitant]
     Active Substance: GUAIFENESIN
  25. KETOTIFEN FUMARATE [Concomitant]
     Active Substance: KETOTIFEN FUMARATE
     Dosage: UNK
     Route: 065
  26. NYSTATIN [Concomitant]
     Active Substance: NYSTATIN
  27. TRIAMCINOLONE [Concomitant]
     Active Substance: TRIAMCINOLONE
  28. DIPHENHYDRAMINE HYDROCHLORIDE [Concomitant]
     Active Substance: DIPHENHYDRAMINE HYDROCHLORIDE

REACTIONS (3)
  - Colitis [Unknown]
  - Fungal infection [Unknown]
  - Influenza [Recovering/Resolving]
